FAERS Safety Report 13124540 (Version 8)
Quarter: 2022Q1

REPORT INFORMATION
  Report Type: Spontaneous
  Country: US (occurrence: US)
  Receive Date: 20170118
  Receipt Date: 20220308
  Transmission Date: 20220423
  Serious: No
  Sender: FDA-Public Use
  Company Number: US-PFIZER INC-2017022709

PATIENT
  Age: 68 Year
  Sex: Female
  Weight: 73 kg

DRUGS (8)
  1. XELJANZ XR [Suspect]
     Active Substance: TOFACITINIB CITRATE
     Indication: Rheumatoid arthritis
     Dosage: 11 MG, DAILY (ONE EVERY NIGHT)
     Route: 048
  2. FENTANYL [Concomitant]
     Active Substance: FENTANYL
     Dosage: UNK
     Route: 062
  3. TRAZODONE [Concomitant]
     Active Substance: TRAZODONE HYDROCHLORIDE
     Dosage: UNK
  4. ATORVASTATIN [Concomitant]
     Active Substance: ATORVASTATIN
     Dosage: UNK
  5. LEVOTHYROXINE [Concomitant]
     Active Substance: LEVOTHYROXINE
     Dosage: UNK
  6. ESTRADIOL [Concomitant]
     Active Substance: ESTRADIOL
     Dosage: 0.5 MG, UNK
  7. GABAPENTIN [Concomitant]
     Active Substance: GABAPENTIN
     Dosage: UNK
  8. LOSARTAN [Concomitant]
     Active Substance: LOSARTAN
     Dosage: UNK

REACTIONS (5)
  - Insomnia [Unknown]
  - Malaise [Unknown]
  - General physical health deterioration [Unknown]
  - Peripheral swelling [Unknown]
  - Joint swelling [Unknown]
